FAERS Safety Report 7915885-1 (Version None)
Quarter: 2011Q4

REPORT INFORMATION
  Report Type: 
  Country: None (occurrence: None)
  Receive Date: 20111115
  Receipt Date: 20111109
  Transmission Date: 20120403
  Serious: Yes (Other)
  Sender: FDA-Public Use
  Company Number: DE-PFIZER INC-2011274266

PATIENT
  Age: 53 Year
  Sex: Female
  Weight: 55 kg

DRUGS (1)
  1. CLINDAMYCIN HCL [Suspect]
     Dosage: 600 MG 8-HOURLY
     Route: 048
     Dates: start: 20110501, end: 20110505

REACTIONS (5)
  - GENERAL PHYSICAL HEALTH DETERIORATION [None]
  - OEDEMA [None]
  - DIARRHOEA [None]
  - RASH GENERALISED [None]
  - VOMITING [None]
